FAERS Safety Report 9538062 (Version 2)
Quarter: 2013Q4

REPORT INFORMATION
  Report Type: Spontaneous
  Country: US (occurrence: US)
  Receive Date: 20130920
  Receipt Date: 20131004
  Transmission Date: 20140711
  Serious: Yes (Life-Threatening)
  Sender: FDA-Public Use
  Company Number: US-JNJFOC-20130907654

PATIENT
  Sex: Female
  Weight: 123.38 kg

DRUGS (3)
  1. IMODIUM A-D CAPLETS [Suspect]
     Route: 048
  2. IMODIUM A-D CAPLETS [Suspect]
     Indication: FOOD POISONING
     Dosage: ONCE, STOPPED ON OCT-2008 OR 2009
     Route: 048
     Dates: start: 20081001
  3. LANTUS [Concomitant]
     Indication: DIABETES MELLITUS
     Route: 065

REACTIONS (3)
  - Shock [Recovered/Resolved]
  - Hypersensitivity [Not Recovered/Not Resolved]
  - Contraindication to medical treatment [Unknown]
